FAERS Safety Report 20502595 (Version 2)
Quarter: 2022Q1

REPORT INFORMATION
  Report Type: Other
  Country: CA (occurrence: None)
  Receive Date: 20220222
  Receipt Date: 20220301
  Transmission Date: 20220424
  Serious: No
  Sender: FDA-Public Use
  Company Number: CA-ROCHE-3027912

PATIENT
  Sex: Female

DRUGS (3)
  1. OCREVUS [Suspect]
     Active Substance: OCRELIZUMAB
     Indication: Relapsing-remitting multiple sclerosis
     Dosage: MORE DOSAGE INFORMATION IS 300 MG AT DAY 0 AND 14, THEN 600 MG EVERY 6 MONTH
     Route: 042
     Dates: start: 20200226, end: 20220223
  2. OCREVUS [Suspect]
     Active Substance: OCRELIZUMAB
     Dosage: MORE DOSAGE INFORMATION IS 300 MG AT DAY 0 AND 14, THEN 600 MG EVERY 6 MONTH
     Route: 042
  3. ABREVA [Concomitant]
     Active Substance: DOCOSANOL

REACTIONS (5)
  - Oral herpes [Not Recovered/Not Resolved]
  - Breast mass [Not Recovered/Not Resolved]
  - Cyst [Not Recovered/Not Resolved]
  - Urinary tract infection [Recovered/Resolved]
  - Vaginal infection [Recovered/Resolved]
